FAERS Safety Report 6958663-2 (Version None)
Quarter: 2010Q3

REPORT INFORMATION
  Report Type: 
  Country: None (occurrence: None)
  Receive Date: 20100830
  Receipt Date: 20100830
  Transmission Date: 20110219
  Serious: Yes (Hospitalization)
  Sender: FDA-Public Use
  Company Number: None

PATIENT
  Age: 50 Year
  Sex: Female
  Weight: 55 kg

DRUGS (4)
  1. TEMSIROLIMUS [Suspect]
     Indication: RETROPERITONEAL CANCER
     Dosage: 10MG IV QWEEK
     Route: 042
     Dates: start: 20100806
  2. CEDIRANIB (AZD2171) [Suspect]
     Dosage: 15MG PO QD
     Route: 048
     Dates: start: 20100806, end: 20100812
  3. NEURONTIN [Concomitant]
  4. PEPCID AC [Concomitant]

REACTIONS (3)
  - ALANINE AMINOTRANSFERASE INCREASED [None]
  - ASPARTATE AMINOTRANSFERASE INCREASED [None]
  - BLOOD ALKALINE PHOSPHATASE INCREASED [None]
